FAERS Safety Report 5886694-2 (Version None)
Quarter: 2008Q3

REPORT INFORMATION
  Report Type: 
  Country: None (occurrence: None)
  Receive Date: 20080917
  Receipt Date: 20080910
  Transmission Date: 20090109
  Serious: Yes (Death, Other)
  Sender: FDA-Public Use
  Company Number: PHEH2008US08099

PATIENT
  Sex: Male

DRUGS (1)
  1. EXJADE [Suspect]

REACTIONS (4)
  - DEATH [None]
  - LEUKAEMIA [None]
  - RENAL FAILURE ACUTE [None]
  - SEPTIC SHOCK [None]
